FAERS Safety Report 13926776 (Version 1)
Quarter: 2017Q3

REPORT INFORMATION
  Report Type: Spontaneous
  Country: US (occurrence: None)
  Receive Date: 20170831
  Receipt Date: 20170831
  Transmission Date: 20171127
  Serious: No
  Sender: FDA-Public Use
  Company Number: None

PATIENT
  Sex: Male

DRUGS (1)
  1. HUMIRA [Suspect]
     Active Substance: ADALIMUMAB
     Indication: PSORIATIC ARTHROPATHY
     Route: 058
     Dates: start: 20170515

REACTIONS (6)
  - Musculoskeletal stiffness [None]
  - Surgery [None]
  - Post procedural infection [None]
  - Therapy cessation [None]
  - Inappropriate schedule of drug administration [None]
  - Pain in extremity [None]
